FAERS Safety Report 21691957 (Version 1)
Quarter: 2022Q4

REPORT INFORMATION
  Report Type: Spontaneous
  Country: US (occurrence: US)
  Receive Date: 20221207
  Receipt Date: 20221207
  Transmission Date: 20230113
  Serious: No
  Sender: FDA-Public Use
  Company Number: US-GLENMARK PHARMACEUTICALS-2022GMK072819

PATIENT

DRUGS (2)
  1. FELODIPINE [Suspect]
     Active Substance: FELODIPINE
     Indication: Product used for unknown indication
     Dosage: UNK (EXPERIENCED ADVERSE EVENTS)
     Route: 065
  2. FELODIPINE [Suspect]
     Active Substance: FELODIPINE
     Dosage: UNK (DID NOT EXPERIENCE ADVERSE EVENTS)
     Route: 065

REACTIONS (3)
  - Joint swelling [Unknown]
  - Peripheral swelling [Unknown]
  - Product quality issue [Unknown]
